FAERS Safety Report 7307796-X (Version None)
Quarter: 2011Q1

REPORT INFORMATION
  Report Type: 
  Country: None (occurrence: None)
  Receive Date: 20110210
  Receipt Date: 20110120
  Transmission Date: 20110831
  Serious: Yes (Death)
  Sender: FDA-Public Use
  Company Number: AE11-009

PATIENT
  Age: 16 Year
  Sex: Male

DRUGS (6)
  1. METHYLENEDIOXY METHAMPHETAMINE (MDMA) [Suspect]
  2. MARIJUANA [Suspect]
  3. LORCET-HD [Suspect]
  4. METHAMPHETAMINE [Suspect]
  5. COCAINE [Suspect]
  6. AMPHETAMINE [Suspect]

REACTIONS (18)
  - DRUG ABUSE [None]
  - SEROTONIN SYNDROME [None]
  - HEPATORENAL FAILURE [None]
  - ACCIDENTAL DEATH [None]
  - MULTI-ORGAN FAILURE [None]
  - HYPOXIC-ISCHAEMIC ENCEPHALOPATHY [None]
  - OXYGEN SATURATION DECREASED [None]
  - COAGULOPATHY [None]
  - HYPERTHERMIA MALIGNANT [None]
  - HAEMODIALYSIS [None]
  - MULTIPLE DRUG OVERDOSE [None]
  - RHABDOMYOLYSIS [None]
  - HYPOGLYCAEMIA [None]
  - MYDRIASIS [None]
  - SHOCK [None]
  - DISSEMINATED INTRAVASCULAR COAGULATION [None]
  - TREMOR [None]
  - BODY TEMPERATURE INCREASED [None]
